FAERS Safety Report 19061282 (Version 1)
Quarter: 2021Q1

REPORT INFORMATION
  Report Type: Spontaneous
  Country: US (occurrence: US)
  Receive Date: 20210325
  Receipt Date: 20210325
  Transmission Date: 20210420
  Serious: Yes (Other)
  Sender: FDA-Public Use
  Company Number: None

PATIENT
  Age: 81 Year
  Sex: Male
  Weight: 110 kg

DRUGS (2)
  1. VEKLURY [Suspect]
     Active Substance: REMDESIVIR
     Indication: COVID-19
     Route: 042
     Dates: start: 20210318, end: 20210319
  2. ATENOLOL. [Concomitant]
     Active Substance: ATENOLOL
     Dates: start: 20210319, end: 20210319

REACTIONS (1)
  - Bradycardia [None]

NARRATIVE: CASE EVENT DATE: 20210320
